FAERS Safety Report 16521125 (Version 11)
Quarter: 2019Q4

REPORT INFORMATION
  Report Type: Report from Study
  Country: KR (occurrence: KR)
  Receive Date: 20190702
  Receipt Date: 20191007
  Transmission Date: 20200122
  Serious: Yes (Hospitalization)
  Sender: FDA-Public Use
  Company Number: KR-EISAI MEDICAL RESEARCH-EC-2019-058527

PATIENT
  Age: 66 Year
  Sex: Female
  Weight: 51.3 kg

DRUGS (15)
  1. CODEINE [Concomitant]
     Active Substance: CODEINE
     Dates: start: 20190517, end: 20190623
  2. LENVATINIB [Suspect]
     Active Substance: LENVATINIB
     Indication: TRIPLE NEGATIVE BREAST CANCER
     Route: 048
     Dates: start: 20190604, end: 20190616
  3. DEXALTIN [Concomitant]
     Active Substance: DEXAMETHASONE
     Dates: start: 20190617, end: 20190623
  4. KALIMATE [Concomitant]
     Active Substance: CALCIUM POLYSTYRENE SULFONATE
     Dates: start: 20190624, end: 20190624
  5. LENVATINIB [Suspect]
     Active Substance: LENVATINIB
     Route: 048
     Dates: start: 20190624, end: 20190624
  6. NORVASC [Concomitant]
     Active Substance: AMLODIPINE BESYLATE
     Dates: start: 20190624
  7. OLMETEC [Concomitant]
     Active Substance: OLMESARTAN MEDOXOMIL
     Dates: start: 20190518, end: 20190623
  8. UREA. [Concomitant]
     Active Substance: UREA
     Dates: start: 20190617
  9. LENVATINIB [Suspect]
     Active Substance: LENVATINIB
     Route: 048
     Dates: start: 20190702
  10. EDARBYCLOR [Concomitant]
     Active Substance: AZILSARTAN KAMEDOXOMIL\CHLORTHALIDONE
     Dates: start: 20190611, end: 20190623
  11. SYNATURA [Concomitant]
     Dates: start: 20190517, end: 20190623
  12. PEMBROLIZUMAB. [Suspect]
     Active Substance: PEMBROLIZUMAB
     Route: 041
     Dates: start: 20190624, end: 20190624
  13. PEMBROLIZUMAB. [Suspect]
     Active Substance: PEMBROLIZUMAB
     Route: 041
     Dates: start: 20190717
  14. PEMBROLIZUMAB. [Suspect]
     Active Substance: PEMBROLIZUMAB
     Indication: TRIPLE NEGATIVE BREAST CANCER
     Route: 041
     Dates: start: 20190604, end: 20190604
  15. FREAMINE III NOS [Concomitant]
     Active Substance: AMINO ACIDS
     Dates: start: 20190617, end: 20190624

REACTIONS (1)
  - Hyponatraemia [Recovered/Resolved]

NARRATIVE: CASE EVENT DATE: 20190626
